FAERS Safety Report 18276379 (Version 1)
Quarter: 2020Q3

REPORT INFORMATION
  Report Type: Spontaneous
  Country: BR (occurrence: BR)
  Receive Date: 20200917
  Receipt Date: 20200917
  Transmission Date: 20201103
  Serious: Yes (Other)
  Sender: FDA-Public Use
  Company Number: BR-SA-2020SA246951

PATIENT

DRUGS (7)
  1. CLEXANE [Suspect]
     Active Substance: ENOXAPARIN SODIUM
     Indication: PANCREATIC CARCINOMA
     Dosage: 1 DF, BID 1 SYRINGE IN THE MORNING AND ONE AT NIGHT
     Route: 058
     Dates: start: 20200627
  2. CLEXANE [Suspect]
     Active Substance: ENOXAPARIN SODIUM
     Indication: PULMONARY EMBOLISM
  3. ZYLORIC [Concomitant]
     Active Substance: ALLOPURINOL
     Indication: BLOOD CHOLESTEROL
     Dosage: 100 MG, HS
     Route: 048
  4. CLEXANE [Suspect]
     Active Substance: ENOXAPARIN SODIUM
     Indication: CEREBROVASCULAR ACCIDENT
  5. SYNTHROID [Concomitant]
     Active Substance: LEVOTHYROXINE SODIUM
     Indication: THYROID DISORDER
     Dosage: 25 MG, QD, 1 PILL IN THE MORNING IN THE FASTING
     Route: 048
  6. ZETIA [Concomitant]
     Active Substance: EZETIMIBE
     Indication: BLOOD CHOLESTEROL
     Dosage: 10 MG, HS
     Route: 048
  7. CONCOR [Concomitant]
     Active Substance: BISOPROLOL FUMARATE
     Indication: CARDIAC DISORDER
     Dosage: 5 MG, QD, IN MORNING
     Route: 048
     Dates: start: 20190727

REACTIONS (2)
  - Drug dependence [Unknown]
  - Product use in unapproved indication [Unknown]
